FAERS Safety Report 10158469 (Version 2)
Quarter: 2014Q2

REPORT INFORMATION
  Report Type: Spontaneous
  Country: US (occurrence: US)
  Receive Date: 20140507
  Receipt Date: 20140507
  Transmission Date: 20141212
  Serious: Yes (Other)
  Sender: FDA-Public Use
  Company Number: US-RB-056502-13

PATIENT
  Age: 33 Year
  Sex: Female
  Weight: 72 kg

DRUGS (3)
  1. SUBUTEX [Suspect]
     Indication: DRUG DEPENDENCE
     Route: 065
     Dates: end: 2013
  2. SUBOXONE FILM [Suspect]
     Indication: DRUG DEPENDENCE
     Dosage: SUBOXONE FILM
     Route: 065
     Dates: start: 201309
  3. NICOTINE [Concomitant]
     Indication: PRODUCT USED FOR UNKNOWN INDICATION
     Dosage: 10 CIGARRETES PER DAY
     Route: 055
     Dates: start: 1992, end: 20140423

REACTIONS (7)
  - Maternal exposure during pregnancy [Recovered/Resolved]
  - Premature labour [Recovered/Resolved]
  - Premature delivery [Recovered/Resolved]
  - Cervix disorder [Unknown]
  - Hypothyroidism [Unknown]
  - Asthenia [Unknown]
  - Malaise [Unknown]
